FAERS Safety Report 16699395 (Version 2)
Quarter: 2019Q3

REPORT INFORMATION
  Report Type: Spontaneous
  Country: US (occurrence: US)
  Receive Date: 20190813
  Receipt Date: 20190823
  Transmission Date: 20191004
  Serious: Yes (Other)
  Sender: FDA-Public Use
  Company Number: US-HORIZON-VIM-0310-2019

PATIENT
  Age: 57 Year
  Sex: Female

DRUGS (1)
  1. VIMOVO [Suspect]
     Active Substance: ESOMEPRAZOLE MAGNESIUM\NAPROXEN
     Indication: POST PROCEDURAL SWELLING
     Dosage: 1 TABLET BY MOUTH TWICE DAILY
     Route: 048
     Dates: start: 201807, end: 201905

REACTIONS (7)
  - Shoulder operation [Unknown]
  - Swelling [Unknown]
  - Pain [Unknown]
  - Off label use [Unknown]
  - Rotator cuff repair [Unknown]
  - Product dose omission [Unknown]
  - Lymphoedema [Recovered/Resolved]

NARRATIVE: CASE EVENT DATE: 2018
